FAERS Safety Report 11808200 (Version 1)
Quarter: 2015Q4

REPORT INFORMATION
  Report Type: Spontaneous
  Country: US (occurrence: US)
  Receive Date: 20151207
  Receipt Date: 20151207
  Transmission Date: 20160305
  Serious: No
  Sender: FDA-Public Use
  Company Number: US-NOVELLABS-2015-US-000045

PATIENT
  Age: 54 Year
  Sex: Female
  Weight: 65.77 kg

DRUGS (2)
  1. POLYETHYLENE GLYCOL 3350. [Suspect]
     Active Substance: POLYETHYLENE GLYCOL 3350
     Dosage: ONCE A DAY,
     Route: 048
     Dates: start: 20150303, end: 20150307
  2. BISACODYL LAXATIVE [Suspect]
     Active Substance: BISACODYL
     Dosage: TWICE A DAY,
     Route: 048
     Dates: start: 20150206, end: 20150309

REACTIONS (1)
  - Drug ineffective [Unknown]

NARRATIVE: CASE EVENT DATE: 20150307
